FAERS Safety Report 10573060 (Version 1)
Quarter: 2014Q4

REPORT INFORMATION
  Report Type: Spontaneous
  Country: US (occurrence: US)
  Receive Date: 20141110
  Receipt Date: 20141110
  Transmission Date: 20150529
  Serious: Yes (Hospitalization, Other)
  Sender: FDA-Public Use
  Company Number: US-GLAXOSMITHKLINE-US2014GSK018672

PATIENT
  Sex: Female

DRUGS (16)
  1. PREDNISONE. [Concomitant]
     Active Substance: PREDNISONE
  2. XANAX [Concomitant]
     Active Substance: ALPRAZOLAM
  3. CELEXA [Concomitant]
     Active Substance: CITALOPRAM HYDROBROMIDE
  4. ATENOLOL. [Concomitant]
     Active Substance: ATENOLOL
  5. VENTOLIN [Concomitant]
     Active Substance: ALBUTEROL SULFATE
  6. LISINOPRIL. [Concomitant]
     Active Substance: LISINOPRIL
  7. INSULIN [Concomitant]
     Active Substance: INSULIN NOS
  8. FUROSEMIDE. [Concomitant]
     Active Substance: FUROSEMIDE
  9. SPIRIVA [Concomitant]
     Active Substance: TIOTROPIUM BROMIDE MONOHYDRATE
  10. AMIODARONE [Concomitant]
     Active Substance: AMIODARONE
  11. LIPITOR [Concomitant]
     Active Substance: ATORVASTATIN CALCIUM
  12. ELIQUIS [Concomitant]
     Active Substance: APIXABAN
  13. SYMBICORT [Concomitant]
     Active Substance: BUDESONIDE\FORMOTEROL FUMARATE DIHYDRATE
  14. LAMICTAL [Suspect]
     Active Substance: LAMOTRIGINE
     Indication: AFFECTIVE DISORDER
     Dosage: 100 MG, U
     Route: 048
     Dates: start: 2011
  15. TRAMADOL [Concomitant]
     Active Substance: TRAMADOL
  16. OXYGEN. [Concomitant]
     Active Substance: OXYGEN

REACTIONS (10)
  - Visual impairment [Not Recovered/Not Resolved]
  - Swelling [Not Recovered/Not Resolved]
  - Atrial fibrillation [Not Recovered/Not Resolved]
  - Ill-defined disorder [Recovered/Resolved]
  - Cardiac failure congestive [Not Recovered/Not Resolved]
  - Dyspnoea [Unknown]
  - Mental disorder [Recovered/Resolved]
  - Dehydration [Unknown]
  - Weight decreased [Not Recovered/Not Resolved]
  - Chest pain [Unknown]

NARRATIVE: CASE EVENT DATE: 2012
